FAERS Safety Report 15423205 (Version 1)
Quarter: 2018Q3

REPORT INFORMATION
  Report Type: Report from Study
  Country: US (occurrence: US)
  Receive Date: 20180925
  Receipt Date: 20180925
  Transmission Date: 20181010
  Serious: Yes (Hospitalization, Other)
  Sender: FDA-Public Use
  Company Number: US-BRISTOL-MYERS SQUIBB COMPANY-BMS-2018-087208

PATIENT
  Age: 67 Year
  Sex: Male
  Weight: 93.8 kg

DRUGS (1)
  1. NIVOLUMAB [Suspect]
     Active Substance: NIVOLUMAB
     Indication: MYELOFIBROSIS
     Dosage: 0.5 MG/KG, OVER 30 MINUTES ON DAY 1
     Route: 042
     Dates: start: 20180404

REACTIONS (5)
  - Pulmonary embolism [Unknown]
  - Confusional state [Recovered/Resolved]
  - Diarrhoea [Recovered/Resolved]
  - Orthostatic hypotension [Unknown]
  - Hyponatraemia [Recovered/Resolved]

NARRATIVE: CASE EVENT DATE: 20180425
